FAERS Safety Report 17959877 (Version 1)
Quarter: 2020Q2

REPORT INFORMATION
  Report Type: Spontaneous
  Country: US (occurrence: US)
  Receive Date: 20200629
  Receipt Date: 20200629
  Transmission Date: 20200714
  Serious: No
  Sender: FDA-Public Use
  Company Number: US-BAUSCH-BL-2020-016805

PATIENT
  Sex: Female

DRUGS (2)
  1. ERYTHROMYCIN OPHTHALMIC OINTMENT USP 0.5% [Suspect]
     Active Substance: ERYTHROMYCIN
     Indication: HORDEOLUM
     Dosage: 1 UNSPECIFIED UNIT
     Route: 047
  2. ERYTHROMYCIN OPHTHALMIC OINTMENT USP 0.5% [Suspect]
     Active Substance: ERYTHROMYCIN
     Indication: PRODUCT USE IN UNAPPROVED INDICATION

REACTIONS (3)
  - Vision blurred [Recovered/Resolved]
  - Product use in unapproved indication [Unknown]
  - Eye pruritus [Unknown]
